FAERS Safety Report 7459537-3 (Version None)
Quarter: 2011Q2

REPORT INFORMATION
  Report Type: 
  Country: None (occurrence: None)
  Receive Date: 20110505
  Receipt Date: 20110428
  Transmission Date: 20111010
  Serious: Yes (Hospitalization)
  Sender: FDA-Public Use
  Company Number: AU-NOVOPROD-314851

PATIENT
  Age: 60 Year
  Sex: Male

DRUGS (5)
  1. MICARDIS [Concomitant]
     Dosage: UNK
  2. DIAMICRON [Concomitant]
  3. NOVOMIX 30 [Suspect]
     Indication: DIABETES MELLITUS
     Dosage: 30 U, QD
     Route: 058
     Dates: start: 20050101, end: 20110127
  4. DIAFORMIN [Concomitant]
  5. CRESTOR [Concomitant]

REACTIONS (2)
  - HYPOGLYCAEMIC UNCONSCIOUSNESS [None]
  - CONVULSION [None]
